FAERS Safety Report 7462447-9 (Version None)
Quarter: 2011Q2

REPORT INFORMATION
  Report Type: 
  Country: None (occurrence: None)
  Receive Date: 20110506
  Receipt Date: 20110401
  Transmission Date: 20111010
  Serious: Yes (Hospitalization)
  Sender: FDA-Public Use
  Company Number: US-BAYER-201036969NA

PATIENT
  Age: 39 Year
  Sex: Female
  Weight: 105.67 kg

DRUGS (4)
  1. FLEXERIL [Concomitant]
  2. YAZ [Suspect]
     Indication: PREMENSTRUAL SYNDROME
     Dosage: UNK UNK, UNK
     Route: 048
     Dates: start: 20081021, end: 20081225
  3. YAZ [Suspect]
     Indication: MOOD SWINGS
  4. VESICARE [Concomitant]

REACTIONS (2)
  - EMOTIONAL DISTRESS [None]
  - PULMONARY EMBOLISM [None]
